FAERS Safety Report 24713883 (Version 1)
Quarter: 2024Q4

REPORT INFORMATION
  Report Type: Spontaneous
  Country: US (occurrence: US)
  Receive Date: 20241209
  Receipt Date: 20241209
  Transmission Date: 20250114
  Serious: No
  Sender: REGENERON
  Company Number: US-REGENERON PHARMACEUTICALS, INC.-2024-072992

PATIENT
  Sex: Male

DRUGS (2)
  1. EYLEA [Suspect]
     Active Substance: AFLIBERCEPT
     Indication: Age-related macular degeneration
     Dosage: 2 MG; (FORMULATION: UNKNOWN)
  2. VABYSMO [Concomitant]
     Active Substance: FARICIMAB-SVOA
     Indication: Age-related macular degeneration
     Dosage: UNK, 1X; SOLUTION FOR INJECTION

REACTIONS (2)
  - Visual impairment [Unknown]
  - Therapeutic response decreased [Unknown]
